FAERS Safety Report 12607425 (Version 2)
Quarter: 2016Q3

REPORT INFORMATION
  Report Type: Spontaneous
  Country: CH (occurrence: CH)
  Receive Date: 20160729
  Receipt Date: 20160801
  Transmission Date: 20161109
  Serious: Yes (Other)
  Sender: FDA-Public Use
  Company Number: CH-PFIZER INC-2016363951

PATIENT
  Age: 82 Year
  Sex: Male

DRUGS (14)
  1. LYRICA [Suspect]
     Active Substance: PREGABALIN
     Indication: TRIGEMINAL NEURALGIA
     Dosage: UNK
     Dates: start: 20160528, end: 20160607
  2. TAZOBAC [Suspect]
     Active Substance: PIPERACILLIN SODIUM\TAZOBACTAM SODIUM
     Dosage: UNK
     Dates: start: 20160710, end: 20160715
  3. PERFALGAN [Concomitant]
     Active Substance: ACETAMINOPHEN
  4. PRADIF T [Concomitant]
     Active Substance: TAMSULOSIN HYDROCHLORIDE
  5. TEGRETOL [Suspect]
     Active Substance: CARBAMAZEPINE
     Indication: TRIGEMINAL NEURALGIA
     Dosage: UNK
     Dates: start: 20160531, end: 20160609
  6. TOREM [Concomitant]
     Active Substance: TORSEMIDE
  7. TAZOBAC [Suspect]
     Active Substance: PIPERACILLIN SODIUM\TAZOBACTAM SODIUM
     Indication: LUNG INFECTION
     Dosage: 4.5 G, 3X/24 H
     Dates: start: 20160606, end: 20160608
  8. LYRICA [Suspect]
     Active Substance: PREGABALIN
     Dosage: UNK
     Dates: start: 20160615, end: 20160621
  9. TEGRETOL [Suspect]
     Active Substance: CARBAMAZEPINE
     Dosage: UNK
     Dates: start: 20160613
  10. ROCEPHIN [Concomitant]
     Active Substance: CEFTRIAXONE SODIUM
     Indication: LUNG INFECTION
     Dosage: UNK
     Dates: start: 20160603, end: 20160605
  11. EXFORGE [Concomitant]
     Active Substance: AMLODIPINE BESYLATE\VALSARTAN
  12. MARCOUMAR [Concomitant]
     Active Substance: PHENPROCOUMON
  13. TAZOBAC [Suspect]
     Active Substance: PIPERACILLIN SODIUM\TAZOBACTAM SODIUM
     Dosage: 4.5 G EVERY 12 H
     Dates: start: 20160609, end: 20160613
  14. DIPIPERON [Concomitant]
     Active Substance: PIPAMPERONE

REACTIONS (1)
  - Delirium [Unknown]

NARRATIVE: CASE EVENT DATE: 20160608
